FAERS Safety Report 5579230-1 (Version None)
Quarter: 2007Q4

REPORT INFORMATION
  Report Type: 
  Country: None (occurrence: None)
  Receive Date: 20071130
  Receipt Date: 20070807
  Transmission Date: 20080405
  Serious: No
  Sender: FDA-Public Use
  Company Number: US200707005463

PATIENT
  Sex: Male

DRUGS (9)
  1. BYETTA [Suspect]
     Dosage: 5 UG
     Dates: start: 20070430, end: 20070514
  2. CYMBALTA [Concomitant]
  3. ENALAPRIL MALEATE [Concomitant]
  4. ALLOPURINOL [Concomitant]
  5. GLUCOTROL [Concomitant]
  6. AVANDAMET [Concomitant]
  7. ZOCOR [Concomitant]
  8. TERAZOSIN HCL [Concomitant]
  9. UROCIT-K (POTASSIUM CITRATE) [Concomitant]

REACTIONS (2)
  - BLOOD PRESSURE SYSTOLIC ABNORMAL [None]
  - DIZZINESS [None]
